FAERS Safety Report 8269664-9 (Version None)
Quarter: 2012Q2

REPORT INFORMATION
  Report Type: 
  Country: None (occurrence: None)
  Receive Date: 20120405
  Receipt Date: 20120326
  Transmission Date: 20120825
  Serious: Yes (Other)
  Sender: FDA-Public Use
  Company Number: USA/USA/12/0023770

PATIENT
  Age: 45 Year
  Sex: Male

DRUGS (3)
  1. LEVETIRACETAM [Suspect]
     Indication: CONGENITAL ABNORMALITY PROPHYLAXIS
     Dosage: 500 MG, 2 IN 1 D
  2. DEXAMETHASONE [Concomitant]
  3. TEMOZOLOMIDE [Concomitant]

REACTIONS (6)
  - FALL [None]
  - TUBULOINTERSTITIAL NEPHRITIS [None]
  - NAUSEA [None]
  - LEUKOCYTURIA [None]
  - DIZZINESS [None]
  - BALANCE DISORDER [None]
